FAERS Safety Report 22637976 (Version 1)
Quarter: 2023Q2

REPORT INFORMATION
  Report Type: Spontaneous
  Country: GB (occurrence: GB)
  Receive Date: 20230626
  Receipt Date: 20230626
  Transmission Date: 20230721
  Serious: Yes (Other)
  Sender: FDA-Public Use
  Company Number: GB-CELLTRION INC.-2023GB012711

PATIENT

DRUGS (1)
  1. INFLIXIMAB [Suspect]
     Active Substance: INFLIXIMAB
     Indication: Colitis ulcerative
     Dosage: 120 MG, PRE FILLED PEN PK2
     Route: 058
     Dates: start: 202210

REACTIONS (4)
  - Haematochezia [Unknown]
  - Condition aggravated [Unknown]
  - Mucous stools [Unknown]
  - Abdominal pain upper [Unknown]
